FAERS Safety Report 4272500-9 (Version None)
Quarter: 2004Q1

REPORT INFORMATION
  Report Type: 
  Country: None (occurrence: None)
  Receive Date: 20040113
  Receipt Date: 20040107
  Transmission Date: 20041129
  Serious: Yes (Life-Threatening)
  Sender: FDA-Public Use
  Company Number: JP-SHR-03-016511

PATIENT
  Age: 69 Year
  Sex: Female
  Weight: 51 kg

DRUGS (7)
  1. FLUDARA [Suspect]
     Indication: CHRONIC LYMPHOCYTIC LEUKAEMIA
     Dosage: 35.8 MG, CYCLE X 5D, INTRVENOUS
     Route: 042
     Dates: start: 20030702, end: 20030706
  2. PREDNISOLONE [Concomitant]
  3. FAMOTIDINE [Concomitant]
  4. MUCOSTA (REBAMIPIDE) [Concomitant]
  5. ZYLORIC ^GLAXO WELLCOME^ [Concomitant]
  6. MAGNESIUM OXIDE (MAGLUX) (MAGNESIUM OXIDE) [Concomitant]
  7. NU LOTAN (LOSARTAN POTASSIUM) [Concomitant]

REACTIONS (3)
  - AUTOIMMUNE THROMBOCYTOPENIA [None]
  - BLOOD CREATININE INCREASED [None]
  - BLOOD POTASSIUM INCREASED [None]
